FAERS Safety Report 18412934 (Version 1)
Quarter: 2020Q4

REPORT INFORMATION
  Report Type: Spontaneous
  Country: US (occurrence: US)
  Receive Date: 20201021
  Receipt Date: 20201021
  Transmission Date: 20210114
  Serious: Yes (Other)
  Sender: FDA-Public Use
  Company Number: US-GE HEALTHCARE LIFE SCIENCES-2020CSU005348

PATIENT
  Sex: Male

DRUGS (10)
  1. OMNISCAN [Suspect]
     Active Substance: GADODIAMIDE
     Indication: ANGIOGRAM
     Dosage: UNK, SINGLE
     Route: 042
  2. OMNISCAN [Suspect]
     Active Substance: GADODIAMIDE
     Indication: RENAL ARTERY STENOSIS
     Dosage: UNK
     Route: 042
     Dates: start: 1999, end: 1999
  3. OMNISCAN [Suspect]
     Active Substance: GADODIAMIDE
     Indication: MAGNETIC RESONANCE IMAGING
     Dosage: UNK, SINGLE
     Route: 042
  4. OMNISCAN [Suspect]
     Active Substance: GADODIAMIDE
     Indication: ARTERIAL DISORDER
  5. OMNISCAN [Suspect]
     Active Substance: GADODIAMIDE
     Indication: MAGNETIC RESONANCE IMAGING
     Dosage: UNK, SINGLE
     Route: 042
     Dates: start: 1995, end: 1995
  6. OMNISCAN [Suspect]
     Active Substance: GADODIAMIDE
     Indication: RENAL ARTERY STENOSIS
     Dosage: UNK
     Route: 042
     Dates: start: 2000, end: 2000
  7. OMNISCAN [Suspect]
     Active Substance: GADODIAMIDE
     Indication: ANGIOGRAM
     Dosage: UNK
     Route: 042
     Dates: start: 1998, end: 1998
  8. OMNISCAN [Suspect]
     Active Substance: GADODIAMIDE
     Indication: ANGIOGRAM
     Dosage: UNK
     Route: 042
     Dates: start: 2000, end: 2000
  9. OMNISCAN [Suspect]
     Active Substance: GADODIAMIDE
     Indication: OSTEOMYELITIS
  10. OMNISCAN [Suspect]
     Active Substance: GADODIAMIDE
     Indication: OSTEOMYELITIS

REACTIONS (1)
  - Nephrogenic systemic fibrosis [Unknown]

NARRATIVE: CASE EVENT DATE: 2019
